FAERS Safety Report 9890971 (Version 1)
Quarter: 2014Q1

REPORT INFORMATION
  Report Type: Spontaneous
  Country: US (occurrence: None)
  Receive Date: 20140211
  Receipt Date: 20140211
  Transmission Date: 20141002
  Serious: Yes (Other)
  Sender: FDA-Public Use
  Company Number: None

PATIENT
  Age: 11 Year
  Sex: Male

DRUGS (1)
  1. HIZENTRA [Suspect]
     Indication: IMMUNODEFICIENCY
     Route: 058
     Dates: start: 20130906, end: 20140201

REACTIONS (6)
  - Swelling face [None]
  - Rash [None]
  - Urticaria [None]
  - Dry throat [None]
  - Fatigue [None]
  - Local swelling [None]
